FAERS Safety Report 5483079-8 (Version None)
Quarter: 2007Q4

REPORT INFORMATION
  Report Type: 
  Country: None (occurrence: None)
  Receive Date: 20071009
  Receipt Date: 20071002
  Transmission Date: 20080405
  Serious: Yes (Life-Threatening, Hospitalization)
  Sender: FDA-Public Use
  Company Number: 167-C5013-07040731

PATIENT
  Age: 57 Year
  Sex: Male
  Weight: 82 kg

DRUGS (9)
  1. CC-5013 (LENALIDOMIDE) (CAPSULES) [Suspect]
     Indication: MULTIPLE MYELOMA
     Dosage: 25 MG, DAILY, 21 DAYS IN 28 DAY ORAL; 25 MG, DAILY, 21 DAYS IN 28 DAY ORAL
     Route: 048
     Dates: start: 20070315, end: 20070412
  2. CC-5013 (LENALIDOMIDE) (CAPSULES) [Suspect]
     Indication: MULTIPLE MYELOMA
     Dosage: 25 MG, DAILY, 21 DAYS IN 28 DAY ORAL; 25 MG, DAILY, 21 DAYS IN 28 DAY ORAL
     Route: 048
     Dates: start: 20070417
  3. DEXAMETHASONE TAB [Suspect]
     Indication: MULTIPLE MYELOMA
     Dosage: 40 MG, DAY 1-4, 9-12, 17-20 IN 28 DAY CYCLE, ORAL; 40 MG, DAY 1-4, 9-12, 17-20 IN 28 DAY CYCLE, ORAL
     Route: 048
     Dates: start: 20070315, end: 20070412
  4. DEXAMETHASONE TAB [Suspect]
     Indication: MULTIPLE MYELOMA
     Dosage: 40 MG, DAY 1-4, 9-12, 17-20 IN 28 DAY CYCLE, ORAL; 40 MG, DAY 1-4, 9-12, 17-20 IN 28 DAY CYCLE, ORAL
     Route: 048
     Dates: start: 20070417
  5. SODIUM CLODRONATE (CLODRONATE DISODIUM) [Concomitant]
  6. MORPHINE (GALENIC/ACETYLSALICYLIC ACID/MORPHINE/) [Concomitant]
  7. ASPIRIN [Concomitant]
  8. ALLOPURINOL (ALLOPURINAOL) [Concomitant]
  9. ORAMORPH SR [Concomitant]

REACTIONS (8)
  - ATELECTASIS [None]
  - BLOOD PRESSURE INCREASED [None]
  - BREAKTHROUGH PAIN [None]
  - EMBOLISM [None]
  - FATIGUE [None]
  - LUNG INFECTION [None]
  - PULMONARY INFARCTION [None]
  - PULMONARY THROMBOSIS [None]
